FAERS Safety Report 13974973 (Version 1)
Quarter: 2017Q3

REPORT INFORMATION
  Report Type: Spontaneous
  Country: US (occurrence: US)
  Receive Date: 20170914
  Receipt Date: 20170914
  Transmission Date: 20171128
  Serious: Yes (Other)
  Sender: FDA-Public Use
  Company Number: US-ASTELLAS-2017US004078

PATIENT
  Age: 77 Year
  Sex: Male

DRUGS (1)
  1. XTANDI [Suspect]
     Active Substance: ENZALUTAMIDE
     Indication: PROSTATE CANCER
     Route: 048
     Dates: start: 20170112

REACTIONS (6)
  - Fatigue [Unknown]
  - Discomfort [Unknown]
  - Hot flush [Unknown]
  - Back pain [Unknown]
  - Mental status changes [Unknown]
  - Fatigue [Unknown]

NARRATIVE: CASE EVENT DATE: 20170126
